FAERS Safety Report 21040046 (Version 1)
Quarter: 2022Q3

REPORT INFORMATION
  Report Type: Report from Study
  Country: US (occurrence: US)
  Receive Date: 20220704
  Receipt Date: 20220704
  Transmission Date: 20221027
  Serious: Yes (Hospitalization)
  Sender: FDA-Public Use
  Company Number: US-NOVARTISPH-NVSC2022US150831

PATIENT
  Sex: Female

DRUGS (1)
  1. COSENTYX [Suspect]
     Active Substance: SECUKINUMAB
     Indication: Psoriasis
     Dosage: 300 MG, (STARTED ON DRUG AND HAD TO STOP DUE TO)
     Route: 058

REACTIONS (2)
  - Gastroenteritis Escherichia coli [Unknown]
  - Abdominal discomfort [Unknown]
